FAERS Safety Report 18079865 (Version 1)
Quarter: 2020Q3

REPORT INFORMATION
  Report Type: Spontaneous
  Country: AR (occurrence: AR)
  Receive Date: 20200728
  Receipt Date: 20200728
  Transmission Date: 20201103
  Serious: Yes (Other)
  Sender: FDA-Public Use
  Company Number: AR-PFIZER INC-2020285450

PATIENT
  Age: 77 Year
  Sex: Male

DRUGS (1)
  1. SUTENT [Suspect]
     Active Substance: SUNITINIB MALATE
     Indication: RENAL CANCER
     Dosage: UNK, DAILY
     Dates: start: 20190410

REACTIONS (4)
  - Skin disorder [Unknown]
  - Immunosuppression [Unknown]
  - Malaise [Unknown]
  - Genital disorder [Unknown]

NARRATIVE: CASE EVENT DATE: 202006
